FAERS Safety Report 7884464-7 (Version None)
Quarter: 2011Q4

REPORT INFORMATION
  Report Type: 
  Country: None (occurrence: None)
  Receive Date: 20111102
  Receipt Date: 20111007
  Transmission Date: 20120403
  Serious: Yes (Other)
  Sender: FDA-Public Use
  Company Number: BR-ROCHE-1008518

PATIENT
  Sex: Female

DRUGS (4)
  1. TRASTUZUMAB [Suspect]
     Indication: BREAST CANCER
     Dosage: LOADING DOSE
  2. CARBOPLATIN [Concomitant]
  3. DOCETAXEL [Concomitant]
  4. TRASTUZUMAB [Suspect]
     Dosage: MAINTENANCE DOSE

REACTIONS (1)
  - RECURRENT CANCER [None]
